FAERS Safety Report 9171411 (Version 1)
Quarter: 2013Q1

REPORT INFORMATION
  Report Type: Spontaneous
  Country: GB (occurrence: GB)
  Receive Date: 20130312
  Receipt Date: 20130312
  Transmission Date: 20140127
  Serious: Yes (Life-Threatening)
  Sender: FDA-Public Use
  Company Number: FK201300655

PATIENT
  Age: 73 Year
  Sex: Male

DRUGS (4)
  1. AMIODARONE HCL [Suspect]
     Indication: VENTRICULAR TACHYCARDIA
     Route: 041
  2. VITAMIN K [Concomitant]
  3. WARFARIN (WARFARIN) [Concomitant]
  4. BETABLOCKER (BETA BLOCKING AGENTS) [Concomitant]

REACTIONS (1)
  - Acute hepatic failure [None]
